FAERS Safety Report 22140711 (Version 1)
Quarter: 2023Q1

REPORT INFORMATION
  Report Type: Spontaneous
  Country: US (occurrence: US)
  Receive Date: 20230327
  Receipt Date: 20230327
  Transmission Date: 20230418
  Serious: Yes (Other)
  Sender: FDA-Public Use
  Company Number: US-SA-SAC20230323000188

PATIENT
  Age: 35 Year

DRUGS (1)
  1. GOLD BOND MEDICATED EXTRA STRENGTH BODY [Suspect]
     Active Substance: MENTHOL
     Dosage: UNK
     Route: 065

REACTIONS (1)
  - Pleural mesothelioma [Unknown]

NARRATIVE: CASE EVENT DATE: 20200611
